FAERS Safety Report 6804077-5 (Version None)
Quarter: 2010Q2

REPORT INFORMATION
  Report Type: 
  Country: None (occurrence: None)
  Receive Date: 20100628
  Receipt Date: 20060831
  Transmission Date: 20101027
  Serious: Yes (Other)
  Sender: FDA-Public Use
  Company Number: US-PFIZER INC-2006106912

PATIENT
  Sex: Female
  Weight: 58.06 kg

DRUGS (4)
  1. SUTENT [Suspect]
     Indication: GASTROINTESTINAL STROMAL TUMOUR
     Route: 065
     Dates: start: 20060501
  2. SUTENT [Suspect]
     Route: 065
     Dates: start: 20060801
  3. SYNTHROID [Concomitant]
     Route: 065
  4. ANTIEMETICS AND ANTINAUSEANTS [Concomitant]
     Route: 065

REACTIONS (6)
  - ASTHENIA [None]
  - BLOOD PRESSURE INCREASED [None]
  - DRUG TOXICITY [None]
  - FATIGUE [None]
  - MALAISE [None]
  - NEUTROPHIL COUNT DECREASED [None]
